FAERS Safety Report 4280619-1 (Version None)
Quarter: 2004Q1

REPORT INFORMATION
  Report Type: 
  Country: None (occurrence: None)
  Receive Date: 20040127
  Receipt Date: 20040116
  Transmission Date: 20041129
  Serious: Yes (Hospitalization)
  Sender: FDA-Public Use
  Company Number: US-JNJFOC-20040103253

PATIENT
  Age: 10 Year
  Sex: Male
  Weight: 22 kg

DRUGS (6)
  1. TOPAMAX [Suspect]
     Indication: CONVULSION
     Dosage: 150 MG, 2 IN 1 DAY
  2. RISPERDAL [Suspect]
     Indication: SCHIZOPHRENIA
     Dosage: 1 MG, 2 IN 1 DAY, ORAL
     Route: 048
  3. KEPPRA [Concomitant]
  4. ATIVAN [Concomitant]
  5. TYLENOL [Concomitant]
  6. PHENOBARBITAL TAB [Concomitant]

REACTIONS (8)
  - ALANINE AMINOTRANSFERASE INCREASED [None]
  - ASPARTATE AMINOTRANSFERASE INCREASED [None]
  - CONDITION AGGRAVATED [None]
  - CONVULSION [None]
  - HAEMATOCRIT DECREASED [None]
  - HAEMOGLOBIN DECREASED [None]
  - HEPATOMEGALY [None]
  - SPLENOMEGALY [None]
